FAERS Safety Report 24591541 (Version 2)
Quarter: 2024Q4

REPORT INFORMATION
  Report Type: Spontaneous
  Country: US (occurrence: US)
  Receive Date: 20241108
  Receipt Date: 20241222
  Transmission Date: 20250115
  Serious: No
  Sender: GLAUKOS
  Company Number: US-GLK-002386

PATIENT
  Age: 94 Year
  Sex: Male

DRUGS (2)
  1. IDOSE TR [Suspect]
     Active Substance: TRAVOPROST
     Indication: Product used for unknown indication
     Dates: start: 202409, end: 202409
  2. LATANOPROST [Concomitant]
     Active Substance: LATANOPROST
     Indication: Product used for unknown indication
     Dosage: QHS (EVERY NIGHT AT BEDTIME); OU (BOTH EYES)

REACTIONS (2)
  - Anterior chamber cell [Unknown]
  - Intraocular pressure increased [Not Recovered/Not Resolved]

NARRATIVE: CASE EVENT DATE: 20241001
